FAERS Safety Report 7032181-8 (Version None)
Quarter: 2010Q4

REPORT INFORMATION
  Report Type: 
  Country: None (occurrence: None)
  Receive Date: 20101007
  Receipt Date: 20100929
  Transmission Date: 20110411
  Serious: Yes (Hospitalization)
  Sender: FDA-Public Use
  Company Number: JP-NOVOPROD-314185

PATIENT
  Age: 57 Year
  Sex: Male
  Weight: 63 kg

DRUGS (5)
  1. VICTOZA [Suspect]
     Indication: TYPE 2 DIABETES MELLITUS
     Dosage: 0.3 MG, QD
     Route: 058
     Dates: start: 20100826
  2. VICTOZA [Suspect]
     Dosage: 0.6 MG, QD
     Route: 058
     Dates: start: 20100828, end: 20100901
  3. LAMISIL                            /00992601/ [Concomitant]
     Dosage: CUTIS
     Route: 061
     Dates: start: 20100827
  4. BIOFERMIN [Concomitant]
     Dosage: 3 G, UNK
     Route: 048
     Dates: start: 20081118
  5. COLONEL [Concomitant]
     Dosage: 1.8 MG, UNK
     Route: 048
     Dates: start: 20081118

REACTIONS (1)
  - HEPATIC FUNCTION ABNORMAL [None]
